FAERS Safety Report 21451522 (Version 2)
Quarter: 2022Q4

REPORT INFORMATION
  Report Type: Spontaneous
  Country: NL (occurrence: NL)
  Receive Date: 20221013
  Receipt Date: 20221028
  Transmission Date: 20230113
  Serious: Yes (Other)
  Sender: FDA-Public Use
  Company Number: NL-ASTELLAS-2022US026848

PATIENT
  Age: 48 Year
  Sex: Female

DRUGS (7)
  1. BENDAMUSTINE HYDROCHLORIDE [Suspect]
     Active Substance: BENDAMUSTINE HYDROCHLORIDE
     Indication: Waldenstrom^s macroglobulinaemia
     Dosage: (6 CYCLES)
     Route: 042
     Dates: start: 2019
  2. DEXAMETHASONE [Suspect]
     Active Substance: DEXAMETHASONE
     Indication: Waldenstrom^s macroglobulinaemia
     Route: 065
  3. CYCLOPHOSPHAMIDE [Suspect]
     Active Substance: CYCLOPHOSPHAMIDE
     Indication: Waldenstrom^s macroglobulinaemia
     Route: 065
  4. IBRUTINIB [Suspect]
     Active Substance: IBRUTINIB
     Indication: Waldenstrom^s macroglobulinaemia
     Route: 065
  5. RITUXIMAB [Concomitant]
     Active Substance: RITUXIMAB
     Indication: Waldenstrom^s macroglobulinaemia
     Dosage: (6 CYCLES)
     Route: 065
     Dates: start: 2019
  6. AFLIBERCEPT [Concomitant]
     Active Substance: AFLIBERCEPT
     Indication: Waldenstrom^s macroglobulinaemia
     Route: 065
     Dates: start: 2019
  7. BORTEZOMIB;DEXAMETHASONE [Concomitant]
     Indication: Waldenstrom^s macroglobulinaemia
     Route: 065
     Dates: start: 2019

REACTIONS (4)
  - Drug-induced liver injury [Unknown]
  - Therapy non-responder [Unknown]
  - Product use issue [Unknown]
  - Off label use [Unknown]

NARRATIVE: CASE EVENT DATE: 20190101
